FAERS Safety Report 24657902 (Version 4)
Quarter: 2025Q4

REPORT INFORMATION
  Report Type: Report from Study
  Country: US (occurrence: None)
  Receive Date: 20241125
  Receipt Date: 20251216
  Transmission Date: 20260118
  Serious: Yes (Other)
  Sender: UCB
  Company Number: US-UCBSA-2024060589

PATIENT
  Age: 10 Year
  Weight: 33.6 kg

DRUGS (7)
  1. FENFLURAMINE [Suspect]
     Active Substance: FENFLURAMINE
     Indication: Product used for unknown indication
     Dosage: UNK
  2. FENFLURAMINE [Suspect]
     Active Substance: FENFLURAMINE
     Dosage: 0.39 MILLIGRAM/KILOGRAM/DAY
  3. FENFLURAMINE [Suspect]
     Active Substance: FENFLURAMINE
     Dosage: 0.44 MG/KG/DAY TO A TOTAL OF 11.88 MG/DAY
  4. FENFLURAMINE [Suspect]
     Active Substance: FENFLURAMINE
     Dosage: 0.4 MG/KG/DAY TO A TOTAL OF 11.9 MG/DAY
  5. FENFLURAMINE [Suspect]
     Active Substance: FENFLURAMINE
     Dosage: 0.38 MG/KG/DAY TO A TOTAL OF 11.88 MG/DAY
  6. FENFLURAMINE [Suspect]
     Active Substance: FENFLURAMINE
     Dosage: 0.35 MG/KG/DAY TO A TOTAL OF 11.88 MG/DAY
  7. FENFLURAMINE [Suspect]
     Active Substance: FENFLURAMINE
     Dosage: 0.3 MG/KG/DAY TO A TOTAL OF 5.9 MILLIGRAM PER DAY

REACTIONS (2)
  - Mitral valve incompetence [Unknown]
  - Mitral valve prolapse [Unknown]
